FAERS Safety Report 24293188 (Version 1)
Quarter: 2024Q3

REPORT INFORMATION
  Report Type: Spontaneous
  Country: US (occurrence: None)
  Receive Date: 20240906
  Receipt Date: 20240906
  Transmission Date: 20241016
  Serious: No
  Sender: DOMPE FARMACEUTICI
  Company Number: US-FARMAPROD-202312-3577

PATIENT
  Sex: Female

DRUGS (9)
  1. OXERVATE [Suspect]
     Active Substance: CENEGERMIN-BKBJ
     Indication: Neurotrophic keratopathy
     Route: 047
     Dates: start: 20231120
  2. SYSTANE (HYPROMELLOSE 2910 (4000 MPA.S)) [Concomitant]
     Active Substance: HYPROMELLOSE 2910 (4000 MPA.S)
     Dosage: 0.3 %-0.4%
  3. XIIDRA [Concomitant]
     Active Substance: LIFITEGRAST
  4. TYRVAYA [Concomitant]
     Active Substance: VARENICLINE TARTRATE
     Dosage: 0.03/SPRAY
  5. ADVIL [Concomitant]
     Active Substance: IBUPROFEN\IBUPROFEN SODIUM
  6. MULTIVITAMIN 50 PLUS [Concomitant]
  7. SIMVASTATIN [Concomitant]
     Active Substance: SIMVASTATIN
  8. LEVOTHYROXINE SODIUM [Concomitant]
     Active Substance: LEVOTHYROXINE SODIUM
  9. TOLTERODINE TARTRATE [Concomitant]
     Active Substance: TOLTERODINE TARTRATE

REACTIONS (6)
  - Eye pain [Recovered/Resolved]
  - Ocular discomfort [Unknown]
  - Ocular hyperaemia [Unknown]
  - Eye swelling [Unknown]
  - Dry skin [Unknown]
  - Alopecia [Unknown]
